FAERS Safety Report 18935934 (Version 1)
Quarter: 2021Q1

REPORT INFORMATION
  Report Type: Spontaneous
  Country: SK (occurrence: SK)
  Receive Date: 20210224
  Receipt Date: 20210224
  Transmission Date: 20210420
  Serious: Yes (Other)
  Sender: FDA-Public Use
  Company Number: SK-ENDO PHARMACEUTICALS INC-2021-001318

PATIENT
  Age: 58 Year
  Sex: Male

DRUGS (1)
  1. AVEED [Suspect]
     Active Substance: TESTOSTERONE UNDECANOATE
     Indication: HORMONE REPLACEMENT THERAPY
     Dosage: 1 DF, EVERY 3 MONTHS
     Route: 065

REACTIONS (1)
  - Pneumonia [Unknown]
